FAERS Safety Report 8713552 (Version 5)
Quarter: 2012Q4

REPORT INFORMATION
  Report Type: 
  Country: CN (occurrence: CN)
  Receive Date: 20120808
  Receipt Date: 20120905
  Transmission Date: 20130627
  Serious: Yes (Hospitalization, Other)
  Sender: FDA-Public Use
  Company Number: PHHY2012CN066630

PATIENT
  Age: 30 Year
  Sex: Male

DRUGS (1)
  1. SEBIVO [Suspect]
     Indication: HEPATITIS B
     Dosage: 600 mg, QD
     Route: 048
     Dates: end: 20120717

REACTIONS (24)
  - Mental impairment [Unknown]
  - Oedema peripheral [Recovered/Resolved]
  - Abdominal discomfort [Recovering/Resolving]
  - Abdominal tenderness [Unknown]
  - Decreased appetite [Unknown]
  - Polymyositis [Unknown]
  - Blood creatine phosphokinase increased [Unknown]
  - Myalgia [Recovering/Resolving]
  - Lactic acidosis [Unknown]
  - Myoglobin blood increased [Unknown]
  - Hyporeflexia [Unknown]
  - Pain [Unknown]
  - Asthenia [Recovering/Resolving]
  - Muscle atrophy [Unknown]
  - Arthralgia [Unknown]
  - Muscle twitching [Unknown]
  - Pain in extremity [Unknown]
  - Gait disturbance [Recovering/Resolving]
  - Mobility decreased [Unknown]
  - Musculoskeletal chest pain [Recovering/Resolving]
  - Chest pain [Unknown]
  - Blood uric acid increased [Unknown]
  - Poor quality sleep [Unknown]
  - Heart rate increased [Unknown]
